FAERS Safety Report 15321853 (Version 6)
Quarter: 2019Q4

REPORT INFORMATION
  Report Type: Spontaneous
  Country: SE (occurrence: SE)
  Receive Date: 20180827
  Receipt Date: 20191024
  Transmission Date: 20200122
  Serious: Yes (Life-Threatening, Hospitalization, Other)
  Sender: FDA-Public Use
  Company Number: SE-MYLANLABS-2018M1062701

PATIENT
  Age: 41 Year
  Sex: Male
  Weight: 74 kg

DRUGS (3)
  1. METHADONE [Suspect]
     Active Substance: METHADONE HYDROCHLORIDE
     Indication: PRODUCT USED FOR UNKNOWN INDICATION
     Dosage: UNK
     Route: 042
  2. BUPRENORPHINE. [Suspect]
     Active Substance: BUPRENORPHINE
     Indication: PRODUCT USED FOR UNKNOWN INDICATION
     Dosage: UNK
  3. HEROIN [Suspect]
     Active Substance: DIAMORPHINE
     Indication: PRODUCT USED FOR UNKNOWN INDICATION
     Dosage: 0.5 GRAM (ABOUT 8 HOURS EARLIER, HE HAD ALSO INJECTED 0.5 G HEROIN )

REACTIONS (8)
  - Loss of consciousness [Unknown]
  - Toxicity to various agents [Recovered/Resolved]
  - Respiratory depression [Unknown]
  - Drug screen positive [Recovered/Resolved]
  - Oxygen saturation decreased [Unknown]
  - Drug abuse [Unknown]
  - Miosis [Recovered/Resolved]
  - Depressed level of consciousness [Unknown]
